FAERS Safety Report 8818857 (Version 2)
Quarter: 2012Q4

REPORT INFORMATION
  Report Type: 
  Country: JP (occurrence: JP)
  Receive Date: 20121001
  Receipt Date: 20121003
  Transmission Date: 20130627
  Serious: Yes (Death)
  Sender: FDA-Public Use
  Company Number: JP-COVIDIEN/TYCO HEALTHCARE/MALLINCKRODT-T201203487

PATIENT
  Age: 43 Year
  Sex: Female
  Weight: 57 kg

DRUGS (29)
  1. METHADONE [Suspect]
     Indication: CANCER PAIN
     Dosage: 30 mg, tid
     Route: 048
     Dates: start: 20110202, end: 20110329
  2. METHADONE [Suspect]
     Dosage: 45 mg, tid
     Route: 048
     Dates: start: 20110330, end: 20110510
  3. METHADONE [Suspect]
     Dosage: 60 mg, tid
     Route: 048
     Dates: start: 20110511, end: 20110601
  4. METHADONE [Suspect]
     Dosage: 75 mg, tid
     Route: 048
     Dates: start: 20110602, end: 20110802
  5. METHADONE [Suspect]
     Dosage: 60 mg, tid
     Route: 048
     Dates: start: 20110803, end: 20111004
  6. METHADONE [Suspect]
     Dosage: 75 mg , tid
     Route: 048
     Dates: start: 20111005, end: 20110507
  7. METHADONE [Suspect]
     Dosage: 60 mg, tid
     Route: 048
     Dates: start: 20120508, end: 20120831
  8. METHADONE [Suspect]
     Dosage: 75 mg, tid
     Route: 048
     Dates: start: 20120901, end: 20120916
  9. OXINORM                            /00045603/ [Concomitant]
     Indication: PAIN
     Dosage: 10 mg/ time as needed for pain
     Dates: start: 20111004, end: 20120916
  10. MOHRUS TAPE [Concomitant]
     Indication: CANCER PAIN
     Dosage: 20-40mg/time as needed, from preinitiation of the trial
     Dates: end: 20120919
  11. KAIBEEL C [Concomitant]
     Indication: CONSTIPATION
     Dosage: 3 tab/time as needed
     Dates: start: 20110204, end: 20120915
  12. MAGLAX [Concomitant]
     Dosage: 1500 mg, tid
     Dates: start: 20110904, end: 20110915
  13. MYSLEE TABLETS [Concomitant]
     Indication: INSOMNIA
     Dosage: 10mg/time as needed, from preinitiation of the trial
     Dates: end: 20120915
  14. ZOMETA [Concomitant]
     Dosage: 4mg (once/6 weeks), from preinitiation of the trial
     Route: 042
     Dates: end: 20120827
  15. SALINE                             /00075401/ [Concomitant]
     Dosage: 100mL (once/6 weeks), from preinitiation of the trial
     Dates: end: 20120827
  16. SALINE                             /00075401/ [Concomitant]
     Dosage: 50mL/week, continue for 3 weeks and stopped for 1 week
     Dates: start: 20120904, end: 20120911
  17. SALINE                             /00075401/ [Concomitant]
     Dosage: 100mL (once/2 weeks)
     Dates: start: 20120904, end: 20120904
  18. SALINE                             /00075401/ [Concomitant]
     Dosage: 40mL/week, continued for 3 weeks and stopped for 1 week
     Dates: start: 20120904, end: 20120911
  19. HEPARIN NA LOCK [Concomitant]
     Indication: PROPHYLAXIS
     Dosage: 10 units/time as needed
     Dates: start: 20110614, end: 20120915
  20. XYLOCAINE                          /00033401/ [Concomitant]
     Indication: STOMATITIS
     Dosage: Adequate dose for stomatitis
     Dates: start: 20120906, end: 20120912
  21. HACHIAZULE                         /00523101/ [Concomitant]
     Indication: STOMATITIS
     Dosage: Adequate dose for stomatitis
     Dates: start: 20120906, end: 20120915
  22. REBAMIPIDE [Concomitant]
     Dosage: 750mg/day tid
     Dates: start: 20120827, end: 20120915
  23. NAUZELIN [Concomitant]
     Dosage: 30mg/day, tid
     Dates: start: 20120906, end: 20120915
  24. VENA                               /00000402/ [Concomitant]
     Dosage: 50mg/week, continue for 3 weeks and stopped for 1 week
     Dates: start: 20120904, end: 20120911
  25. DEXART [Concomitant]
     Dosage: 6.6mg/week, continue for 3 weeks and stopped for 1 week
     Dates: start: 20120904, end: 20120911
  26. GASTER [Concomitant]
     Dosage: 20mg/week, continue for 3 weeks and stopped for 1 week
     Dates: start: 20120904, end: 20120911
  27. AVASTIN /00848101/ [Concomitant]
     Dosage: 570mg (once/2 weeks)
     Dates: start: 20120904, end: 20120904
  28. PACLITAXEL [Concomitant]
     Dosage: 123mg /week, continued for 3 weeks and stopped for 1 week
     Dates: start: 20110904, end: 20120911
  29. OTSUKA GLUCOSE INJECTION 5% [Concomitant]
     Dosage: 250mL /week, continued for 3 weeks and stopped for 1 week
     Dates: start: 20120904, end: 20120911

REACTIONS (1)
  - Breast cancer [Fatal]
